FAERS Safety Report 24252310 (Version 1)
Quarter: 2024Q3

REPORT INFORMATION
  Report Type: Spontaneous
  Country: US (occurrence: US)
  Receive Date: 20240827
  Receipt Date: 20240827
  Transmission Date: 20241017
  Serious: No
  Sender: NOVARTIS
  Company Number: US-002147023-NVSC2024US172502

PATIENT

DRUGS (2)
  1. CYCLOSPORINE [Suspect]
     Active Substance: CYCLOSPORINE
     Indication: Product used for unknown indication
     Dosage: UNK
     Route: 065
  2. XOLAIR [Suspect]
     Active Substance: OMALIZUMAB
     Indication: Product used for unknown indication
     Dosage: UNK
     Route: 065

REACTIONS (13)
  - Eczema [Unknown]
  - Dermatitis contact [Unknown]
  - Dry skin [Unknown]
  - Cystitis interstitial [Unknown]
  - Irritable bowel syndrome [Unknown]
  - Hypersensitivity [Unknown]
  - Quality of life decreased [Unknown]
  - Muscle spasms [Unknown]
  - Micturition urgency [Unknown]
  - Hypermobility syndrome [Unknown]
  - Bladder pain [Unknown]
  - Pollakiuria [Unknown]
  - Urticaria [Unknown]
